FAERS Safety Report 14802076 (Version 1)
Quarter: 2018Q2

REPORT INFORMATION
  Report Type: Spontaneous
  Country: FI (occurrence: FI)
  Receive Date: 20180424
  Receipt Date: 20180424
  Transmission Date: 20180711
  Serious: Yes (Death)
  Sender: FDA-Public Use
  Company Number: FI-MYLANLABS-2018M1025002

PATIENT
  Age: 8 Year

DRUGS (1)
  1. TOPOTECAN [Suspect]
     Active Substance: TOPOTECAN HYDROCHLORIDE
     Indication: BRAIN STEM GLIOMA
     Dosage: UNK
     Route: 041

REACTIONS (4)
  - Product use in unapproved indication [Fatal]
  - Drug administered to patient of inappropriate age [Fatal]
  - Brain stem glioma [Fatal]
  - Malignant neoplasm progression [Fatal]
